FAERS Safety Report 5977942-9 (Version None)
Quarter: 2008Q4

REPORT INFORMATION
  Report Type: 
  Country: None (occurrence: None)
  Receive Date: 20081203
  Receipt Date: 20081126
  Transmission Date: 20090506
  Serious: Yes (Other)
  Sender: FDA-Public Use
  Company Number: MY-ROXANE LABORATORIES, INC.-2008-RO-00299RO

PATIENT
  Age: 32 Year
  Sex: Male

DRUGS (7)
  1. MIDAZOLAM HCL [Suspect]
     Indication: DYSKINESIA
  2. MIDAZOLAM HCL [Suspect]
     Indication: INTENTIONAL DRUG MISUSE
     Dosage: 150MG
  3. MIDAZOLAM HCL [Suspect]
  4. MIDAZOLAM HCL [Suspect]
     Dosage: 30MG
  5. MIRTAZAPINE [Concomitant]
     Indication: INSOMNIA
  6. MIRTAZAPINE [Concomitant]
     Indication: DEPRESSION
  7. MIRTAZAPINE [Concomitant]
     Indication: WITHDRAWAL SYNDROME

REACTIONS (4)
  - DEPRESSION [None]
  - DRUG DEPENDENCE [None]
  - INTENTIONAL DRUG MISUSE [None]
  - MYOCLONUS [None]
